FAERS Safety Report 11852704 (Version 1)
Quarter: 2015Q4

REPORT INFORMATION
  Report Type: Spontaneous
  Country: CO (occurrence: CO)
  Receive Date: 20151218
  Receipt Date: 20151218
  Transmission Date: 20160305
  Serious: Yes (Other)
  Sender: FDA-Public Use
  Company Number: CO-PFIZER INC-2015452471

PATIENT
  Age: 8 Year
  Sex: Female

DRUGS (1)
  1. GENOTROPIN [Suspect]
     Active Substance: SOMATROPIN
     Indication: GROWTH HORMONE DEFICIENCY
     Dosage: UNK
     Route: 058
     Dates: start: 20020414

REACTIONS (9)
  - Blood antidiuretic hormone abnormal [Unknown]
  - Haemorrhage [Unknown]
  - Adrenal disorder [Unknown]
  - Von Willebrand^s disease [Unknown]
  - Immunoglobulins abnormal [Unknown]
  - Angioedema [Unknown]
  - Endocrine disorder [Unknown]
  - Thyroid disorder [Unknown]
  - Drug prescribing error [Unknown]

NARRATIVE: CASE EVENT DATE: 201004
